FAERS Safety Report 21050939 (Version 6)
Quarter: 2023Q2

REPORT INFORMATION
  Report Type: Report from Study
  Country: CL (occurrence: CL)
  Receive Date: 20220707
  Receipt Date: 20230405
  Transmission Date: 20230721
  Serious: Yes (Hospitalization)
  Sender: FDA-Public Use
  Company Number: CL-ABBVIE-22K-034-4457529-00

PATIENT
  Age: 62 Year
  Sex: Female

DRUGS (2)
  1. HUMIRA [Suspect]
     Active Substance: ADALIMUMAB
     Indication: Rheumatoid arthritis
     Route: 058
     Dates: start: 20180509, end: 20220804
  2. PALTOMIEL (eucalyptus, palto, anis) [Concomitant]
     Indication: Product used for unknown indication

REACTIONS (17)
  - Chest injury [Recovering/Resolving]
  - Urinary tract infection [Not Recovered/Not Resolved]
  - Hospitalisation [Recovered/Resolved]
  - Dyspnoea [Unknown]
  - Aphonia [Recovering/Resolving]
  - Pain in extremity [Not Recovered/Not Resolved]
  - Limb injury [Unknown]
  - Fall [Unknown]
  - Urinary tract infection [Recovered/Resolved]
  - Pain in extremity [Not Recovered/Not Resolved]
  - Pain in extremity [Not Recovered/Not Resolved]
  - Musculoskeletal chest pain [Unknown]
  - Nasopharyngitis [Not Recovered/Not Resolved]
  - Localised infection [Unknown]
  - Musculoskeletal chest pain [Not Recovered/Not Resolved]
  - Chest injury [Unknown]
  - Hospitalisation [Unknown]

NARRATIVE: CASE EVENT DATE: 20220601
